FAERS Safety Report 9512258 (Version 1)
Quarter: 2013Q3

REPORT INFORMATION
  Report Type: Spontaneous
  Country: US (occurrence: US)
  Receive Date: 20130910
  Receipt Date: 20130910
  Transmission Date: 20140515
  Serious: No
  Sender: FDA-Public Use
  Company Number: US-SANOFI-AVENTIS-2013SA008445

PATIENT
  Age: 79 Year
  Sex: Female
  Weight: 40.3 kg

DRUGS (5)
  1. TRENTAL [Suspect]
     Indication: ERYTHEMA NODOSUM
     Dates: start: 20130111, end: 20130128
  2. AMIODARONE [Concomitant]
  3. OMEPRAZOLE [Concomitant]
     Route: 048
  4. ASPIRIN [Concomitant]
     Route: 048
  5. PRED [Concomitant]

REACTIONS (6)
  - Erythema [Not Recovered/Not Resolved]
  - Hepatic enzyme increased [Not Recovered/Not Resolved]
  - Flatulence [Not Recovered/Not Resolved]
  - Eructation [Not Recovered/Not Resolved]
  - Asthenia [Not Recovered/Not Resolved]
  - Decreased appetite [Not Recovered/Not Resolved]
